FAERS Safety Report 4753471-5 (Version None)
Quarter: 2005Q3

REPORT INFORMATION
  Report Type: 
  Country: None (occurrence: None)
  Receive Date: 20050824
  Receipt Date: 20050812
  Transmission Date: 20060218
  Serious: Yes (Other)
  Sender: FDA-Public Use
  Company Number: HQWYE907115AUG05

PATIENT
  Age: 31 Year
  Sex: Female

DRUGS (1)
  1. NEOVLAR (LEVONORGESTREL/ETHINYL ESTRADIOL, TABLET) [Suspect]
     Indication: CONTRACEPTION
     Dosage: 1 TABLET 1X PER 1 DAY
     Route: 048
     Dates: start: 20030101, end: 20050805

REACTIONS (7)
  - ABORTION SPONTANEOUS [None]
  - DRUG INEFFECTIVE [None]
  - HEADACHE [None]
  - PAIN IN EXTREMITY [None]
  - PREGNANCY ON ORAL CONTRACEPTIVE [None]
  - SELF-MEDICATION [None]
  - VOMITING [None]
